FAERS Safety Report 6266453-1 (Version None)
Quarter: 2009Q3

REPORT INFORMATION
  Report Type: 
  Country: None (occurrence: None)
  Receive Date: 20090713
  Receipt Date: 20090629
  Transmission Date: 20100115
  Serious: Yes (Life-Threatening, Hospitalization)
  Sender: FDA-Public Use
  Company Number: FR-GENENTECH-286283

PATIENT
  Sex: Female

DRUGS (8)
  1. XOLAIR [Suspect]
     Indication: ASPERGILLOSIS
     Dosage: 300 MG, Q4W
     Dates: start: 20080514, end: 20090602
  2. SERETIDE DISKUS [Concomitant]
     Indication: DRUG USE FOR UNKNOWN INDICATION
  3. CORTANCYL [Concomitant]
     Indication: DRUG USE FOR UNKNOWN INDICATION
  4. BRONCHODUAL [Concomitant]
     Indication: DRUG USE FOR UNKNOWN INDICATION
  5. BRICANYL [Concomitant]
     Indication: DRUG USE FOR UNKNOWN INDICATION
  6. ATROVENT [Concomitant]
     Indication: DRUG USE FOR UNKNOWN INDICATION
  7. FOSAMAX [Concomitant]
     Indication: DRUG USE FOR UNKNOWN INDICATION
  8. ANTIBIOTICS (NOT SPECIFIED) [Concomitant]
     Indication: DRUG USE FOR UNKNOWN INDICATION

REACTIONS (9)
  - DIPLOPIA [None]
  - DISORDER OF GLOBE [None]
  - DYSAESTHESIA [None]
  - EYELID OEDEMA [None]
  - NEOPLASM OF ORBIT [None]
  - NEUROPATHY PERIPHERAL [None]
  - ORBITAL OEDEMA [None]
  - PAIN IN EXTREMITY [None]
  - PLASMACYTOMA [None]
